FAERS Safety Report 21949237 (Version 5)
Quarter: 2023Q1

REPORT INFORMATION
  Report Type: Spontaneous
  Country: GB (occurrence: GB)
  Receive Date: 20230203
  Receipt Date: 20230313
  Transmission Date: 20230418
  Serious: Yes (Other)
  Sender: FDA-Public Use
  Company Number: GB-MYLANLABS-2023M1006407

PATIENT
  Sex: Female

DRUGS (17)
  1. CLOZARIL [Suspect]
     Active Substance: CLOZAPINE
     Indication: Schizophrenia
     Dosage: UNK
     Route: 048
     Dates: start: 20230109, end: 20230119
  2. CLOZARIL [Suspect]
     Active Substance: CLOZAPINE
     Indication: Schizoaffective disorder
     Dosage: 12.5 MILLIGRAM
     Route: 065
  3. CLOZARIL [Suspect]
     Active Substance: CLOZAPINE
     Dosage: 150 MILLIGRAM, BID
     Route: 065
  4. CLOZARIL [Suspect]
     Active Substance: CLOZAPINE
     Dosage: 150 MG AM AND 175 MG PM
     Route: 065
  5. SCOPOLAMINE [Concomitant]
     Active Substance: SCOPOLAMINE
     Dosage: 150 MILLIGRAM
     Route: 065
  6. ARIPIPRAZOLE [Concomitant]
     Active Substance: ARIPIPRAZOLE
     Indication: Hyperprolactinaemia
     Dosage: 5 MILLIGRAM, QD
     Route: 048
  7. LITHIUM [Concomitant]
     Active Substance: LITHIUM
     Dosage: 400MG AT 10:00 AM AND 500MG AT 22:00
     Route: 065
  8. LITHIUM [Concomitant]
     Active Substance: LITHIUM
     Dosage: 400 MILLIGRAM, BID
     Route: 065
  9. FLUPENTIXOL [Concomitant]
     Active Substance: FLUPENTIXOL
     Dosage: 60 MILLIGRAM, BIWEEKLY
     Route: 030
     Dates: end: 20221226
  10. MIRTAZAPINE [Concomitant]
     Active Substance: MIRTAZAPINE
     Dosage: 30 MILLIGRAM
     Route: 048
  11. PROMETHAZINE [Concomitant]
     Active Substance: PROMETHAZINE HYDROCHLORIDE
     Dosage: 50 MILLIGRAM
     Route: 048
  12. CHOLECALCIFEROL [Concomitant]
     Active Substance: CHOLECALCIFEROL
     Dosage: 200 INTERNATIONAL UNIT, QD
     Route: 048
  13. LEVONORGESTREL [Concomitant]
     Active Substance: LEVONORGESTREL
     Dosage: 150 MICROGRAMS ETHINYLESTRADIOL (RIGEVIDON) 30 MICROGRAMS PO OD
     Route: 048
  14. ETHINYL ESTRADIOL\LEVONORGESTREL [Concomitant]
     Active Substance: ETHINYL ESTRADIOL\LEVONORGESTREL
     Dosage: 30 MICROGRAM, QD
     Route: 065
  15. PROCYCLIDINE [Concomitant]
     Active Substance: PROCYCLIDINE
     Dosage: E 2.5 -5MG PO PRN (MAXIMUM DOSE 15MG)
     Route: 048
  16. LORAZEPAM [Concomitant]
     Active Substance: LORAZEPAM
     Dosage: 1 MILLIGRAM, QID
     Route: 048
  17. LORAZEPAM [Concomitant]
     Active Substance: LORAZEPAM
     Dosage: UNK (1-2 MILLIGRAM)
     Route: 030

REACTIONS (12)
  - Hyperprolactinaemia [Unknown]
  - Blood bicarbonate decreased [Recovered/Resolved]
  - C-reactive protein increased [Recovering/Resolving]
  - Blood disorder [Unknown]
  - White blood cell count increased [Not Recovered/Not Resolved]
  - Tachycardia [Recovered/Resolved]
  - Salivary hypersecretion [Recovered/Resolved]
  - Eosinophilia [Recovering/Resolving]
  - Aspartate aminotransferase increased [Unknown]
  - Alanine aminotransferase increased [Unknown]
  - Blood lactate dehydrogenase increased [Unknown]
  - Off label use [Unknown]

NARRATIVE: CASE EVENT DATE: 20230119
